FAERS Safety Report 22121010 (Version 5)
Quarter: 2023Q4

REPORT INFORMATION
  Report Type: Spontaneous
  Country: US (occurrence: US)
  Receive Date: 20230321
  Receipt Date: 20231106
  Transmission Date: 20240109
  Serious: No
  Sender: FDA-Public Use
  Company Number: US-PFIZER INC-PV202300048645

PATIENT
  Age: 3 Year
  Sex: Female

DRUGS (5)
  1. GENOTROPIN [Suspect]
     Active Substance: SOMATROPIN
     Indication: Septo-optic dysplasia
     Dosage: 0.2 MG, DAILY
  2. GENOTROPIN [Suspect]
     Active Substance: SOMATROPIN
     Indication: Blood growth hormone
     Dosage: 0.4 MG, 1X/DAY (AT NIGHT EVERY NIGHT)
     Route: 030
     Dates: start: 201906
  3. GENOTROPIN [Suspect]
     Active Substance: SOMATROPIN
     Dosage: 0.5 MG
  4. LEVOTHYROXINE [Concomitant]
     Active Substance: LEVOTHYROXINE
     Dosage: 37.5 UG, 1X/DAY
     Route: 048
  5. HYDROCORTISONE [Concomitant]
     Active Substance: HYDROCORTISONE
     Dosage: 1.25 MG, 2X/DAY
     Route: 048
     Dates: start: 2019

REACTIONS (6)
  - Drug dose omission by device [Unknown]
  - Device leakage [Unknown]
  - Device breakage [Unknown]
  - Device use issue [Unknown]
  - Device information output issue [Unknown]
  - Device power source issue [Unknown]

NARRATIVE: CASE EVENT DATE: 20230312
